FAERS Safety Report 6179420-3 (Version None)
Quarter: 2009Q2

REPORT INFORMATION
  Report Type: 
  Country: None (occurrence: None)
  Receive Date: 20090505
  Receipt Date: 20090504
  Transmission Date: 20091009
  Serious: Yes (Hospitalization)
  Sender: FDA-Public Use
  Company Number: A0782040A

PATIENT
  Age: 66 Year
  Sex: Male

DRUGS (12)
  1. TOPOTECAN [Suspect]
     Indication: MALIGNANT GLIOMA
     Dosage: 2MGM2 CYCLIC
     Route: 048
     Dates: start: 20081023
  2. TEMODAR [Suspect]
     Indication: MALIGNANT GLIOMA
     Dosage: 200MGM2 CYCLIC
     Route: 048
     Dates: start: 20081022
  3. CYMBALTA [Concomitant]
     Dosage: 30MG PER DAY
     Route: 048
  4. ATENOLOL [Concomitant]
     Dosage: 50MG PER DAY
     Route: 048
  5. CIPRODEX [Concomitant]
     Route: 001
  6. DEXAMETHASONE TAB [Concomitant]
     Dosage: .5MG PER DAY
     Route: 048
  7. TEGRETOL [Concomitant]
     Dosage: 300MG THREE TIMES PER DAY
     Route: 048
  8. ADVAIR HFA [Concomitant]
     Route: 055
  9. ALBUTEROL [Concomitant]
     Route: 055
  10. ZOFRAN [Concomitant]
     Route: 048
  11. NASONEX [Concomitant]
  12. HYDROCODONE BITARTRATE [Concomitant]
     Route: 048

REACTIONS (12)
  - ANAEMIA [None]
  - CONFUSIONAL STATE [None]
  - DEHYDRATION [None]
  - DYSPHAGIA [None]
  - HYPOALBUMINAEMIA [None]
  - HYPOCALCAEMIA [None]
  - HYPOKALAEMIA [None]
  - HYPOPHOSPHATAEMIA [None]
  - HYPOTENSION [None]
  - LEUKOPENIA [None]
  - NEUTROPENIA [None]
  - PNEUMONIA [None]
